FAERS Safety Report 6667454-1 (Version None)
Quarter: 2010Q2

REPORT INFORMATION
  Report Type: 
  Country: None (occurrence: None)
  Receive Date: 20100405
  Receipt Date: 20100330
  Transmission Date: 20101027
  Serious: Yes (Other)
  Sender: FDA-Public Use
  Company Number: CHPA2010US05934

PATIENT
  Sex: Female

DRUGS (1)
  1. TRIAMINIC COLD AND ALLERGY (NCH) [Suspect]
     Dosage: UNK, UNK
     Route: 048
     Dates: start: 20100201

REACTIONS (3)
  - CARDIAC DISORDER [None]
  - HYPERTENSION [None]
  - MYOCARDIAL INFARCTION [None]
